FAERS Safety Report 8800622 (Version 2)
Quarter: 2012Q4

REPORT INFORMATION
  Report Type: 
  Country: US (occurrence: US)
  Receive Date: 20120921
  Receipt Date: 20121226
  Transmission Date: 20130627
  Serious: Yes (Hospitalization)
  Sender: FDA-Public Use
  Company Number: US-ELI_LILLY_AND_COMPANY-US201209003862

PATIENT
  Sex: Female
  Weight: 67 kg

DRUGS (11)
  1. ADCIRCA [Suspect]
     Indication: PULMONARY ARTERIAL HYPERTENSION
     Dosage: 40 mg, qd
     Route: 048
     Dates: start: 20051202
  2. FERROUS SULFATE [Concomitant]
     Dosage: 325 mg, tid
  3. PANTOPRAZOLE [Concomitant]
     Dosage: 40 mg, qd
  4. WARFARIN [Concomitant]
  5. DIGOXIN [Concomitant]
     Dosage: 125 ug, qd
  6. ACARBOSE [Concomitant]
     Dosage: 50 mg, tid
  7. TRACLEER [Concomitant]
     Dosage: 125 mg, bid
  8. SYNTHROID [Concomitant]
     Dosage: 125 ug, qd
  9. ATIVAN [Concomitant]
     Dosage: 1 mg, qd
  10. METOLAZONE [Concomitant]
     Dosage: 5 mg, 4/W
  11. DIOVAN [Concomitant]
     Dosage: 80 mg, qd

REACTIONS (2)
  - Right ventricular failure [Recovered/Resolved]
  - Renal failure [Unknown]
